FAERS Safety Report 4433148-6 (Version None)
Quarter: 2004Q3

REPORT INFORMATION
  Report Type: 
  Country: None (occurrence: None)
  Receive Date: 20040823
  Receipt Date: 20040809
  Transmission Date: 20050211
  Serious: Yes (Hospitalization)
  Sender: FDA-Public Use
  Company Number: 202689

PATIENT
  Age: 40 Year
  Sex: Male
  Weight: 86.1834 kg

DRUGS (5)
  1. AVONEX [Suspect]
     Indication: MULTIPLE SCLEROSIS
     Dosage: 15 MCG QW IM
     Route: 030
     Dates: start: 20040101, end: 20040201
  2. AVONEX [Suspect]
     Indication: MULTIPLE SCLEROSIS
     Dosage: 30 MCG QW IM
     Route: 030
     Dates: start: 20040201
  3. LOVASTATIN [Concomitant]
  4. LISINOPRIL [Concomitant]
  5. AMARYL [Concomitant]

REACTIONS (12)
  - BALANCE DISORDER [None]
  - DIFFICULTY IN WALKING [None]
  - FEAR [None]
  - HEADACHE [None]
  - HYPERHIDROSIS [None]
  - INFLUENZA LIKE ILLNESS [None]
  - INSOMNIA [None]
  - MUSCLE CRAMP [None]
  - NAUSEA [None]
  - NEPHROLITHIASIS [None]
  - VISION BLURRED [None]
  - VISUAL DISTURBANCE [None]
